FAERS Safety Report 10524701 (Version 3)
Quarter: 2015Q2

REPORT INFORMATION
  Report Type: Spontaneous
  Country: US (occurrence: US)
  Receive Date: 20141017
  Receipt Date: 20150423
  Transmission Date: 20150821
  Serious: Yes (Hospitalization)
  Sender: FDA-Public Use
  Company Number: US-BAYER-2014-153737

PATIENT
  Age: 30 Year
  Sex: Female
  Weight: 75.28 kg

DRUGS (3)
  1. HYDROCORTISONE ACETATE. [Concomitant]
     Active Substance: HYDROCORTISONE ACETATE
  2. PRENATAL [Concomitant]
     Active Substance: VITAMINS
  3. MIRENA [Suspect]
     Active Substance: LEVONORGESTREL
     Indication: CONTRACEPTION
     Dosage: 20 MCG/24HR, CONT
     Route: 015
     Dates: start: 20120524, end: 20121003

REACTIONS (13)
  - Dyspareunia [None]
  - Anxiety [None]
  - Fallopian tube disorder [None]
  - Abdominal pain [None]
  - Sexual dysfunction [None]
  - Uterine perforation [None]
  - Injury [None]
  - Dizziness [None]
  - Pain [None]
  - Vaginal haemorrhage [None]
  - Emotional distress [None]
  - Syncope [None]
  - Uterine scar [None]

NARRATIVE: CASE EVENT DATE: 201209
